FAERS Safety Report 21559155 (Version 2)
Quarter: 2022Q4

REPORT INFORMATION
  Report Type: Report from Study
  Country: RO (occurrence: RO)
  Receive Date: 20221107
  Receipt Date: 20221118
  Transmission Date: 20230112
  Serious: Yes (Hospitalization)
  Sender: FDA-Public Use
  Company Number: RO-002147023-NVSC2022RO249269

PATIENT
  Age: 80 Year
  Sex: Female

DRUGS (5)
  1. EXELON [Suspect]
     Active Substance: RIVASTIGMINE TARTRATE
     Indication: Product used for unknown indication
     Dosage: 4.6 MG (3 YEARS AGO)
     Route: 065
  2. EXELON [Suspect]
     Active Substance: RIVASTIGMINE TARTRATE
     Dosage: 9.5 MG (INCREASED THE CONCENTRATION AFTER APPROXIMATELY 3)
     Route: 065
  3. EXELON [Suspect]
     Active Substance: RIVASTIGMINE TARTRATE
     Dosage: 13.3 MG (AFTER A YEAR IT WAS INCREASED)
     Route: 065
  4. EXELON [Suspect]
     Active Substance: RIVASTIGMINE TARTRATE
     Dosage: 13.6 OR 13.9 MG (INCREASED AFTER A YEAR)
     Route: 065
  5. EXELON [Suspect]
     Active Substance: RIVASTIGMINE TARTRATE
     Dosage: 9.5 MG (DECREASED IT AGAIN 2 YEARS AGO)
     Route: 065
     Dates: start: 2021

REACTIONS (7)
  - Feeling abnormal [Unknown]
  - Malaise [Recovered/Resolved]
  - Dizziness [Unknown]
  - Headache [Unknown]
  - Fall [Unknown]
  - Diarrhoea [Recovered/Resolved]
  - Dehydration [Recovered/Resolved]
